FAERS Safety Report 5637413-6 (Version None)
Quarter: 2008Q1

REPORT INFORMATION
  Report Type: 
  Country: None (occurrence: None)
  Receive Date: 20080225
  Receipt Date: 20080211
  Transmission Date: 20080703
  Serious: Yes (Death, Life-Threatening, Hospitalization)
  Sender: FDA-Public Use
  Company Number: US-ROCHE-545387

PATIENT
  Age: 60 Year
  Sex: Male
  Weight: 69.4 kg

DRUGS (8)
  1. CAPECITABINE [Suspect]
     Dosage: EVERY 14 DAYS OF 21 DAY CYCLE
     Route: 042
     Dates: start: 20071217, end: 20080120
  2. ELOXATIN [Suspect]
     Dosage: TAKEN ON DAY 1 AND 8 OF 21 DAY CYCLE
     Route: 042
     Dates: start: 20071217, end: 20080114
  3. POTASSIUM CHLORIDE [Concomitant]
  4. LORAZEPAM [Concomitant]
  5. LOMOTIL [Concomitant]
  6. DIOVAN [Concomitant]
  7. IMODIUM [Concomitant]
  8. COMPAZINE [Concomitant]
     Dosage: DRUG NAME: COMPAZINE (PROCHLORPERAZINE EDISYLATE).

REACTIONS (18)
  - BLOOD CREATININE INCREASED [None]
  - BLOOD POTASSIUM DECREASED [None]
  - CARDIAC ARREST [None]
  - CARDIAC FAILURE [None]
  - CYTOMEGALOVIRUS TEST POSITIVE [None]
  - DIARRHOEA [None]
  - GENERAL PHYSICAL HEALTH DETERIORATION [None]
  - HAEMOGLOBIN DECREASED [None]
  - HYPOTENSION [None]
  - HYPOXIA [None]
  - LUNG INFILTRATION [None]
  - METABOLIC ACIDOSIS [None]
  - NAUSEA [None]
  - PLATELET COUNT DECREASED [None]
  - PYREXIA [None]
  - SEPSIS [None]
  - THROMBOCYTOPENIA [None]
  - VOMITING [None]
